FAERS Safety Report 24345554 (Version 1)
Quarter: 2024Q3

REPORT INFORMATION
  Report Type: Spontaneous
  Country: US (occurrence: US)
  Receive Date: 20240920
  Receipt Date: 20240920
  Transmission Date: 20241016
  Serious: No
  Sender: VIVUS
  Company Number: US-VIVUS LLC-2024V1000583

PATIENT
  Sex: Female

DRUGS (1)
  1. QSYMIA [Suspect]
     Active Substance: PHENTERMINE HYDROCHLORIDE\TOPIRAMATE
     Indication: Product used for unknown indication
     Route: 048

REACTIONS (6)
  - Herpes zoster [Unknown]
  - Gait disturbance [Not Recovered/Not Resolved]
  - Moisture-associated skin damage [Not Recovered/Not Resolved]
  - Increased tendency to bruise [Not Recovered/Not Resolved]
  - Scoliosis [Not Recovered/Not Resolved]
  - Arthritis [Not Recovered/Not Resolved]
